FAERS Safety Report 5471701-1 (Version None)
Quarter: 2007Q3

REPORT INFORMATION
  Report Type: 
  Country: None (occurrence: None)
  Receive Date: 20070928
  Receipt Date: 20070410
  Transmission Date: 20080115
  Serious: No
  Sender: FDA-Public Use
  Company Number: US-BRISTOL-MYERS SQUIBB COMPANY-13743810

PATIENT
  Age: 73 Year
  Sex: Male
  Weight: 108 kg

DRUGS (11)
  1. DEFINITY [Suspect]
     Indication: ECHOCARDIOGRAM
     Route: 042
     Dates: start: 20070409
  2. LASIX [Concomitant]
  3. DIOVAN [Concomitant]
     Dates: end: 20070330
  4. K-DUR 10 [Concomitant]
     Dates: end: 20070330
  5. COUMADIN [Concomitant]
  6. MULTI-VITAMIN [Concomitant]
  7. PROSCAR [Concomitant]
  8. GLUCOSAMINE SULFATE [Concomitant]
  9. OMEGA 3 FISH OIL [Concomitant]
  10. SPIRONOLACTONE [Concomitant]
  11. METOPROLOL TARTRATE [Concomitant]

REACTIONS (2)
  - CHEST PAIN [None]
  - NAUSEA [None]
